FAERS Safety Report 5632837-5 (Version None)
Quarter: 2008Q1

REPORT INFORMATION
  Report Type: 
  Country: None (occurrence: None)
  Receive Date: 20080221
  Receipt Date: 20080214
  Transmission Date: 20080703
  Serious: Yes (Congenital Anomaly)
  Sender: FDA-Public Use
  Company Number: CH-WYE-G01060608

PATIENT
  Sex: Male

DRUGS (3)
  1. EFFEXOR [Suspect]
     Indication: MAJOR DEPRESSION
     Route: 064
     Dates: start: 20060307, end: 20060705
  2. EFFEXOR [Suspect]
     Indication: CONDUCT DISORDER
  3. TEMESTA [Suspect]
     Indication: ANTISOCIAL BEHAVIOUR
     Route: 064
     Dates: start: 20060307, end: 20060705

REACTIONS (1)
  - HYPOSPADIAS [None]
